FAERS Safety Report 5113553-5 (Version None)
Quarter: 2006Q3

REPORT INFORMATION
  Report Type: 
  Country: None (occurrence: None)
  Receive Date: 20060920
  Receipt Date: 20060901
  Transmission Date: 20061208
  Serious: Yes (Hospitalization, Other)
  Sender: FDA-Public Use
  Company Number: DE200609000380

PATIENT
  Age: 68 Year
  Sex: Male

DRUGS (1)
  1. GEMZAR [Suspect]
     Indication: PANCREATIC CARCINOMA
     Dosage: 1000 MG/M2, DAILY (1/D), ORAL
     Route: 048
     Dates: start: 20060101

REACTIONS (10)
  - BLOOD THYROID STIMULATING HORMONE DECREASED [None]
  - CATHETER SEPSIS [None]
  - DIALYSIS [None]
  - HAEMOLYTIC URAEMIC SYNDROME [None]
  - HYPERTENSIVE CRISIS [None]
  - INFECTION [None]
  - PNEUMONIA [None]
  - PULMONARY OEDEMA [None]
  - RENAL FAILURE ACUTE [None]
  - THYROXINE INCREASED [None]
